FAERS Safety Report 4559619-X (Version None)
Quarter: 2005Q1

REPORT INFORMATION
  Report Type: 
  Country: None (occurrence: None)
  Receive Date: 20050124
  Receipt Date: 20050112
  Transmission Date: 20050727
  Serious: Yes (Other)
  Sender: FDA-Public Use
  Company Number: IE-ABBOTT-05P-229-0286411-00

PATIENT
  Age: 40 Year
  Sex: Female

DRUGS (4)
  1. EPILIM CHRONO TABLETS [Suspect]
     Indication: EPILEPSY
     Route: 048
     Dates: start: 20041224, end: 20050102
  2. EPILIM CHRONO TABLETS [Suspect]
  3. EPILIM TABLETS [Suspect]
     Indication: EPILEPSY
     Dates: end: 20041223
  4. EPILIM TABLETS [Suspect]
     Route: 048
     Dates: start: 20050103

REACTIONS (2)
  - MEDICATION ERROR [None]
  - PETIT MAL EPILEPSY [None]
